FAERS Safety Report 11169438 (Version 3)
Quarter: 2015Q3

REPORT INFORMATION
  Report Type: Spontaneous
  Country: US (occurrence: US)
  Receive Date: 20150605
  Receipt Date: 20150903
  Transmission Date: 20151125
  Serious: Yes (Death, Hospitalization, Other)
  Sender: FDA-Public Use
  Company Number: US-ELI_LILLY_AND_COMPANY-US201506000702

PATIENT
  Age: 59 Year
  Sex: Male

DRUGS (2)
  1. AXIRON [Suspect]
     Active Substance: TESTOSTERONE
     Indication: BLOOD TESTOSTERONE DECREASED
     Dosage: UNK, UNKNOWN
     Route: 065
  2. ANDROGEL [Suspect]
     Active Substance: TESTOSTERONE
     Indication: BLOOD TESTOSTERONE DECREASED
     Dosage: UNK, UNKNOWN
     Route: 065
     Dates: start: 20100407

REACTIONS (7)
  - Ischaemic stroke [Unknown]
  - Carotid artery occlusion [Unknown]
  - Influenza like illness [Unknown]
  - Motor dysfunction [Unknown]
  - Cardiopulmonary failure [Fatal]
  - Amnesia [Unknown]
  - Speech disorder [Unknown]

NARRATIVE: CASE EVENT DATE: 201307
